FAERS Safety Report 7724221-5 (Version None)
Quarter: 2011Q3

REPORT INFORMATION
  Report Type: 
  Country: None (occurrence: None)
  Receive Date: 20110829
  Receipt Date: 20110817
  Transmission Date: 20111222
  Serious: Yes (Other)
  Sender: FDA-Public Use
  Company Number: 2011IL0214

PATIENT
  Age: 28 Month
  Sex: Male

DRUGS (1)
  1. KINERET [Suspect]
     Indication: JUVENILE ARTHRITIS
     Dosage: SUBCUTANEOUS
     Route: 058

REACTIONS (1)
  - HISTIOCYTOSIS HAEMATOPHAGIC [None]
